FAERS Safety Report 9507624 (Version 1)
Quarter: 2013Q1

REPORT INFORMATION
  Report Type: Spontaneous
  Country: US (occurrence: None)
  Receive Date: 20130305
  Receipt Date: 20130305
  Transmission Date: 20140127
  Serious: Yes (Hospitalization)
  Sender: FDA-Public Use
  Company Number: 163-21880-12111324

PATIENT
  Age: 81 Year
  Sex: Female

DRUGS (9)
  1. REVLIMID (LENALIDOMIDE) (CAPSULES) [Suspect]
     Indication: PLASMA CELL MYELOMA
     Dosage: 5 MG, 21 IN 21 D, ORAL?
     Route: 048
     Dates: start: 20101119
  2. SYNTHROID (LEVOTHYROXINE SODIUM) (UNKNOWN) [Concomitant]
  3. ZOCOR (SIMVASTATIN) (UNKNOWN) [Concomitant]
  4. CYMBALTA (DULOXITNE HYDROCLORIDE) [Concomitant]
  5. TIMOPTIC (TIMOLOL MALEATE) [Concomitant]
  6. VENTOLIN HFA (SALBUTAMOL SULFATE) [Concomitant]
  7. NEURONTIN (GABAPENTIN) [Concomitant]
  8. COLACE (DOCUSATE SODIUM) [Concomitant]
  9. ACTONEL (RISEDRONATE SODIUM) [Concomitant]

REACTIONS (1)
  - Fall [None]
